FAERS Safety Report 5480125-2 (Version None)
Quarter: 2007Q4

REPORT INFORMATION
  Report Type: 
  Country: None (occurrence: None)
  Receive Date: 20071009
  Receipt Date: 20071001
  Transmission Date: 20080405
  Serious: Yes (Disabling)
  Sender: FDA-Public Use
  Company Number: PHBS2007NL14878

PATIENT
  Sex: Female

DRUGS (4)
  1. DIOVAN [Suspect]
     Indication: HYPERTENSION
     Dosage: 160 MG/DAY
     Route: 048
     Dates: start: 20060901
  2. DIOVAN [Suspect]
     Dosage: 80 MG/DAY
     Route: 048
  3. LIPITOR [Concomitant]
  4. ASPIRIN AND DIPYRIDAMOLE [Concomitant]

REACTIONS (4)
  - CHRONIC SINUSITIS [None]
  - DEAFNESS [None]
  - EUSTACHIAN TUBE DISORDER [None]
  - SINUSITIS [None]
